FAERS Safety Report 8010863-9 (Version None)
Quarter: 2011Q4

REPORT INFORMATION
  Report Type: 
  Country: None (occurrence: None)
  Receive Date: 20111228
  Receipt Date: 20111215
  Transmission Date: 20120403
  Serious: Yes (Hospitalization)
  Sender: FDA-Public Use
  Company Number: US-ELI_LILLY_AND_COMPANY-US201105003880

PATIENT
  Sex: Female
  Weight: 121.9 kg

DRUGS (30)
  1. AMITRIPTILINA [Concomitant]
  2. OXYCODONE HCL [Concomitant]
  3. CICLOPIROX [Concomitant]
  4. FORTEO [Suspect]
     Indication: OSTEOPOROSIS
     Dosage: 20 UG, QD
     Route: 065
     Dates: start: 20110315
  5. LIPITOR [Concomitant]
  6. FENTANYL [Concomitant]
  7. SALAGEN [Concomitant]
  8. METHOTREXATE [Concomitant]
  9. CYMBALTA [Concomitant]
     Route: 065
  10. HUMALOG [Concomitant]
     Indication: DIABETES MELLITUS
     Route: 065
  11. CEFIXIME [Concomitant]
  12. FOLIC ACID [Concomitant]
  13. HUMIRA [Concomitant]
  14. SODIUM CHLORIDE [Concomitant]
  15. ALBUTEROL [Concomitant]
  16. AZITHROMYCIN [Concomitant]
  17. SOMA [Concomitant]
  18. FORTEO [Suspect]
     Dosage: 20 UG, QD
     Route: 065
     Dates: end: 20110929
  19. DILTIAZEM HCL [Concomitant]
  20. VITAMIN D [Concomitant]
  21. PANTOPRAZOLE SODIUM SESQUIHYDRATE [Concomitant]
  22. POTASSIUM [Concomitant]
  23. PREDNISONE TAB [Concomitant]
  24. NOVOLOG [Concomitant]
  25. LISINOPRIL [Concomitant]
  26. METOPROLOL SUCCINATE [Concomitant]
  27. SUCRALFATE [Concomitant]
  28. LASIX [Concomitant]
  29. MIRAP [Concomitant]
  30. PHENERGAN [Concomitant]

REACTIONS (7)
  - HYPONATRAEMIA [None]
  - OVERDOSE [None]
  - CONFUSIONAL STATE [None]
  - BRONCHIAL HYPERREACTIVITY [None]
  - HYPERTENSION [None]
  - POLYURIA [None]
  - DYSPNOEA [None]
